FAERS Safety Report 19871912 (Version 1)
Quarter: 2021Q3

REPORT INFORMATION
  Report Type: Spontaneous
  Country: US (occurrence: US)
  Receive Date: 20210921
  Receipt Date: 20210921
  Transmission Date: 20211014
  Serious: Yes (Hospitalization)
  Sender: FDA-Public Use
  Company Number: None

PATIENT
  Sex: Female
  Weight: 66.3 kg

DRUGS (1)
  1. LENALIDOMIDE (CC?5013) [Suspect]
     Active Substance: LENALIDOMIDE

REACTIONS (11)
  - Back pain [None]
  - Gait disturbance [None]
  - Haematuria [None]
  - Urinary retention [None]
  - Hyponatraemia [None]
  - Escherichia infection [None]
  - Hypokalaemia [None]
  - Sepsis [None]
  - Blood creatinine increased [None]
  - Flank pain [None]
  - Acute kidney injury [None]

NARRATIVE: CASE EVENT DATE: 20210918
